FAERS Safety Report 9750116 (Version 1)
Quarter: 2013Q4

REPORT INFORMATION
  Report Type: Spontaneous
  Country: US (occurrence: US)
  Receive Date: 20131212
  Receipt Date: 20131212
  Transmission Date: 20140711
  Serious: No
  Sender: FDA-Public Use
  Company Number: US-GILEAD-US-CVT-090468

PATIENT
  Sex: Female

DRUGS (1)
  1. RANEXA [Suspect]
     Indication: ANGINA PECTORIS
     Route: 048

REACTIONS (3)
  - Dysgeusia [Unknown]
  - Weight decreased [Unknown]
  - Decreased appetite [Unknown]
